FAERS Safety Report 7531399-5 (Version None)
Quarter: 2011Q2

REPORT INFORMATION
  Report Type: 
  Country: None (occurrence: None)
  Receive Date: 20110608
  Receipt Date: 20110602
  Transmission Date: 20111010
  Serious: No
  Sender: FDA-Public Use
  Company Number: HN-SANOFI-AVENTIS-2011SA021045

PATIENT
  Age: 41 Year
  Sex: Female
  Weight: 72 kg

DRUGS (3)
  1. KETOPROFEN [Concomitant]
     Indication: ARTHRITIS
     Route: 048
  2. AVAMIGRAN [Concomitant]
     Indication: MIGRAINE
     Route: 048
  3. ARAVA [Suspect]
     Indication: RHEUMATOID ARTHRITIS
     Route: 048
     Dates: start: 20101004, end: 20110405

REACTIONS (1)
  - DRUG EXPOSURE DURING PREGNANCY [None]
